FAERS Safety Report 5408694-9 (Version None)
Quarter: 2007Q3

REPORT INFORMATION
  Report Type: 
  Country: None (occurrence: None)
  Receive Date: 20070808
  Receipt Date: 20070802
  Transmission Date: 20080115
  Serious: Yes (Death, Hospitalization)
  Sender: FDA-Public Use
  Company Number: A0667911A

PATIENT
  Sex: Female

DRUGS (4)
  1. ADVAIR DISKUS 100/50 [Suspect]
     Indication: CHRONIC OBSTRUCTIVE PULMONARY DISEASE
     Dosage: 1PUFF TWICE PER DAY
     Route: 055
     Dates: end: 20070722
  2. SPIRIVA [Concomitant]
  3. NEBULIZER TREATMENT [Concomitant]
  4. ALBUTEROL [Concomitant]

REACTIONS (2)
  - LUNG NEOPLASM [None]
  - RESPIRATORY FAILURE [None]
